FAERS Safety Report 5085497-9 (Version None)
Quarter: 2006Q3

REPORT INFORMATION
  Report Type: 
  Country: None (occurrence: None)
  Receive Date: 20060731
  Receipt Date: 20060222
  Transmission Date: 20061208
  Serious: Yes (Other)
  Sender: FDA-Public Use
  Company Number: 200610380BWH

PATIENT
  Age: 76 Year
  Sex: Female
  Weight: 75.7507 kg

DRUGS (8)
  1. AVELOX [Suspect]
     Indication: CHEST DISCOMFORT
     Dosage: 400 MG, QD, ORAL
     Route: 048
  2. AVELOX [Suspect]
     Indication: COUGH
     Dosage: 400 MG, QD, ORAL
     Route: 048
  3. AVELOX [Suspect]
     Indication: DYSPHONIA
     Dosage: 400 MG, QD, ORAL
     Route: 048
  4. AVELOX [Suspect]
     Indication: WHEEZING
     Dosage: 400 MG, QD, ORAL
     Route: 048
  5. TRIKOF D (DEXTROMETHORPHAN W/ GUAIFENESIN / PSEUDOEPHEDRINE [Suspect]
     Dosage: 600 - 28 MG BID
  6. VITAMIN E [Concomitant]
  7. ASPIRIN [Concomitant]
  8. TOPROL-XL [Concomitant]

REACTIONS (4)
  - HYPERSENSITIVITY [None]
  - OEDEMA PERIPHERAL [None]
  - PAIN IN EXTREMITY [None]
  - THROAT TIGHTNESS [None]
